FAERS Safety Report 21300128 (Version 1)
Quarter: 2022Q3

REPORT INFORMATION
  Report Type: Spontaneous
  Country: US (occurrence: None)
  Receive Date: 20220906
  Receipt Date: 20220906
  Transmission Date: 20221027
  Serious: No
  Sender: FDA-Public Use
  Company Number: None

PATIENT
  Sex: Female

DRUGS (1)
  1. COSENTYX [Suspect]
     Active Substance: SECUKINUMAB
     Indication: Psoriatic arthropathy
     Dosage: NJECT ONE PEN SUBCUTANEOUSLY ONCE WEEKLY FOR 5 WEEKS (WEEKS 0, 1, 2, 3, AND 4), THEN INJECT EVERY 4
     Route: 058
     Dates: start: 202206

REACTIONS (1)
  - Drug ineffective [None]
